FAERS Safety Report 12317622 (Version 1)
Quarter: 2016Q2

REPORT INFORMATION
  Report Type: Spontaneous
  Country: BR (occurrence: BR)
  Receive Date: 20160429
  Receipt Date: 20160429
  Transmission Date: 20160815
  Serious: Yes (Death, Hospitalization)
  Sender: FDA-Public Use
  Company Number: BR-JNJFOC-20160425351

PATIENT
  Age: 17 Year
  Sex: Female

DRUGS (5)
  1. DIPYRONE [Suspect]
     Active Substance: DIPYRONE
     Indication: INFLUENZA
     Route: 065
     Dates: start: 201604
  2. PARACETAMOL [Suspect]
     Active Substance: ACETAMINOPHEN
     Indication: INFLUENZA
     Route: 065
     Dates: start: 201604
  3. AMOXICILLIN. [Suspect]
     Active Substance: AMOXICILLIN
     Indication: INFLUENZA
     Route: 065
     Dates: start: 201604
  4. PHYSIOLOGICAL SALINE SOLUTION [Suspect]
     Active Substance: SODIUM CHLORIDE
     Indication: INFLUENZA
     Route: 042
     Dates: start: 201604
  5. PARACETAMOL [Suspect]
     Active Substance: ACETAMINOPHEN
     Route: 065

REACTIONS (4)
  - Exposure during pregnancy [Recovered/Resolved]
  - Premature labour [Recovered/Resolved]
  - Death [Fatal]
  - Influenza [Fatal]

NARRATIVE: CASE EVENT DATE: 201604
